FAERS Safety Report 4360148-7 (Version None)
Quarter: 2004Q2

REPORT INFORMATION
  Report Type: 
  Country: None (occurrence: None)
  Receive Date: 20040519
  Receipt Date: 20040511
  Transmission Date: 20050107
  Serious: Yes (Death, Hospitalization)
  Sender: FDA-Public Use
  Company Number: PHBS2004NL06395

PATIENT
  Sex: Female

DRUGS (11)
  1. CYCLOSPORINE [Suspect]
     Indication: JUVENILE ARTHRITIS
     Route: 065
     Dates: end: 20010101
  2. METHOTREXATE [Suspect]
     Indication: JUVENILE ARTHRITIS
  3. METHYLPREDNISOLONE [Suspect]
     Indication: JUVENILE ARTHRITIS
     Dosage: PULSES
  4. ETANERCEPT [Suspect]
     Dosage: 0.4 MG/KG TWICE A WEEK
     Dates: start: 20010101
  5. ETANERCEPT [Suspect]
     Dosage: 0.8 MG/KG TWICE A WEEK
  6. PREDNISONE [Suspect]
  7. INFLIXIMAB [Suspect]
     Dosage: 20 MG/KG, QMO
     Dates: start: 20020101
  8. ETHAMBUTOL HCL [Concomitant]
  9. ISONIAZID [Concomitant]
  10. PYRAZINAMIDE [Concomitant]
  11. RIFAMPICIN [Concomitant]

REACTIONS (19)
  - BACTERIAL CULTURE POSITIVE [None]
  - CARDIAC ARREST [None]
  - CARDIOPULMONARY FAILURE [None]
  - CATHETER RELATED INFECTION [None]
  - CENTRAL VENOUS PRESSURE INCREASED [None]
  - CYST [None]
  - DRUG INEFFECTIVE [None]
  - ESCHERICHIA INFECTION [None]
  - IMMUNE SYSTEM DISORDER [None]
  - LUNG INFECTION [None]
  - LYMPHOPENIA [None]
  - MYCOBACTERIAL INFECTION [None]
  - OPPORTUNISTIC INFECTION [None]
  - OXYGEN SATURATION DECREASED [None]
  - PNEUMONIA LIPOID [None]
  - PULMONARY EMBOLISM [None]
  - RESPIRATORY FAILURE [None]
  - SHOCK [None]
  - TUBERCULOSIS [None]
